FAERS Safety Report 11653789 (Version 5)
Quarter: 2015Q4

REPORT INFORMATION
  Report Type: Report from Study
  Country: US (occurrence: US)
  Receive Date: 20151022
  Receipt Date: 20151107
  Transmission Date: 20160304
  Serious: No
  Sender: FDA-Public Use
  Company Number: PHEH2015US021311

PATIENT
  Age: 35 Year
  Sex: Male

DRUGS (1)
  1. GILENYA [Suspect]
     Active Substance: FINGOLIMOD HYDROCHLORIDE
     Indication: PRODUCT USED FOR UNKNOWN INDICATION
     Dosage: 0.5 MG, QD
     Route: 048
     Dates: start: 20151015

REACTIONS (1)
  - Heart rate decreased [Recovered/Resolved]

NARRATIVE: CASE EVENT DATE: 20151015
